FAERS Safety Report 6010064-X (Version None)
Quarter: 2008Q4

REPORT INFORMATION
  Report Type: 
  Country: None (occurrence: None)
  Receive Date: 20081216
  Receipt Date: 20081201
  Transmission Date: 20090506
  Serious: Yes (Hospitalization)
  Sender: FDA-Public Use
  Company Number: KV200800664

PATIENT
  Age: 46 Year
  Sex: Female
  Weight: 81.6 kg

DRUGS (8)
  1. ISOSORBIDE MONONITRATE [Suspect]
     Indication: CORONARY ARTERY DISEASE
     Dosage: ORAL
     Route: 048
     Dates: start: 19950101
  2. COREG [Concomitant]
  3. RANEXA (RANOLAZINE) [Concomitant]
  4. QUINAPRIL [Concomitant]
  5. NORVASC [Concomitant]
  6. SIMVASTATIN [Concomitant]
  7. PLAVIX [Concomitant]
  8. ASPIRIN (ACETYSLAICYLIC ACID) [Concomitant]

REACTIONS (3)
  - DIZZINESS [None]
  - HYPOTENSION [None]
  - PRODUCT QUALITY ISSUE [None]
